FAERS Safety Report 5059958-2 (Version None)
Quarter: 2006Q3

REPORT INFORMATION
  Report Type: 
  Country: None (occurrence: None)
  Receive Date: 20060719
  Receipt Date: 20060711
  Transmission Date: 20061208
  Serious: Yes (Hospitalization, Other)
  Sender: FDA-Public Use
  Company Number: HQWYE854412JUL06

PATIENT
  Sex: Male

DRUGS (2)
  1. RAPAMUNE [Suspect]
     Indication: HEART TRANSPLANT
     Dosage: DOSE STRENGTH 2 MG; UNSPECIFIED DAILY FREQUENCY, ORAL
     Route: 048
  2. PREDNISONE TAB [Concomitant]

REACTIONS (1)
  - HEART TRANSPLANT REJECTION [None]
